FAERS Safety Report 7364089-2 (Version None)
Quarter: 2011Q1

REPORT INFORMATION
  Report Type: 
  Country: None (occurrence: None)
  Receive Date: 20110321
  Receipt Date: 20110222
  Transmission Date: 20110831
  Serious: No
  Sender: FDA-Public Use
  Company Number: US-B.I. PHARMACEUTICALS,INC./RIDGEFIELD-2011-BP-00453BP

PATIENT
  Sex: Female

DRUGS (8)
  1. ESTRODIOL PATCH [Concomitant]
     Indication: MENOPAUSE
  2. METAMUCIL-2 [Concomitant]
     Indication: PROPHYLAXIS
  3. VITAMIN D [Concomitant]
     Indication: PROPHYLAXIS
  4. CALCIUM [Concomitant]
     Indication: PROPHYLAXIS
  5. PRADAXA [Suspect]
     Indication: ATRIAL FIBRILLATION
     Dosage: 300 MG
     Route: 048
     Dates: start: 20101209
  6. TOPROL-XL [Concomitant]
     Indication: ATRIAL FIBRILLATION
  7. ZINC [Concomitant]
     Indication: PROPHYLAXIS
  8. METOPROLOL SUCCINATE [Concomitant]
     Indication: ATRIAL FIBRILLATION
     Dosage: 12.5 MG
     Route: 048

REACTIONS (10)
  - HAEMORRHAGE [None]
  - REFLUX OESOPHAGITIS [None]
  - DIARRHOEA [None]
  - FREQUENT BOWEL MOVEMENTS [None]
  - CONJUNCTIVAL HAEMORRHAGE [None]
  - OEDEMA PERIPHERAL [None]
  - JOINT SWELLING [None]
  - PETECHIAE [None]
  - ABDOMINAL DISCOMFORT [None]
  - CONDITION AGGRAVATED [None]
